FAERS Safety Report 14885844 (Version 2)
Quarter: 2020Q3

REPORT INFORMATION
  Report Type: Other
  Country: US (occurrence: US)
  Receive Date: 20180512
  Receipt Date: 20200730
  Transmission Date: 20201102
  Serious: Yes (Other)
  Sender: FDA-Public Use
  Company Number: US-ROCHE-2108004

PATIENT
  Sex: Male

DRUGS (9)
  1. LUCENTIS [Suspect]
     Active Substance: RANIBIZUMAB
     Indication: DIABETIC EYE DISEASE
  2. LUCENTIS [Suspect]
     Active Substance: RANIBIZUMAB
     Indication: DIABETIC RETINOPATHY
  3. LUCENTIS [Suspect]
     Active Substance: RANIBIZUMAB
     Indication: MACULAR OEDEMA
  4. METOLAZONE. [Concomitant]
     Active Substance: METOLAZONE
  5. LEVEMIR [Concomitant]
     Active Substance: INSULIN DETEMIR
  6. FUROSEMIDE. [Concomitant]
     Active Substance: FUROSEMIDE
  7. LUCENTIS [Suspect]
     Active Substance: RANIBIZUMAB
     Indication: DIABETIC RETINOPATHY
  8. LUCENTIS [Suspect]
     Active Substance: RANIBIZUMAB
     Indication: TYPE 2 DIABETES MELLITUS
     Route: 050
  9. ASPIRIN. [Concomitant]
     Active Substance: ASPIRIN

REACTIONS (16)
  - Retinal haemorrhage [Unknown]
  - Peripheral swelling [Unknown]
  - Fatigue [Unknown]
  - Cystoid macular oedema [Unknown]
  - Cough [Unknown]
  - Myalgia [Unknown]
  - Gait disturbance [Unknown]
  - Dysuria [Unknown]
  - Depression [Unknown]
  - Arthralgia [Unknown]
  - Retinal exudates [Unknown]
  - Vision blurred [Unknown]
  - Weight decreased [Unknown]
  - Decreased appetite [Unknown]
  - Drug ineffective [Unknown]
  - Retinal cyst [Unknown]
